FAERS Safety Report 6094938-X (Version None)
Quarter: 2009Q1

REPORT INFORMATION
  Report Type: 
  Country: None (occurrence: None)
  Receive Date: 20090225
  Receipt Date: 20080520
  Transmission Date: 20090719
  Serious: Yes (Other)
  Sender: FDA-Public Use
  Company Number: US023592

PATIENT
  Age: 65 Year
  Sex: Male
  Weight: 106.5953 kg

DRUGS (8)
  1. PROVIGIL [Suspect]
     Indication: SLEEP APNOEA SYNDROME
     Dosage: 200 MG QAM ORAL
     Route: 048
     Dates: start: 20060501
  2. AMBIEN [Concomitant]
  3. DARVOCET [Concomitant]
  4. CARVEDILOL [Concomitant]
  5. AMIODARONE [Concomitant]
  6. HYZAAR [Concomitant]
  7. TRIAMTERENE [Concomitant]
  8. XANAX [Concomitant]

REACTIONS (8)
  - AMNESIA [None]
  - ANGER [None]
  - BLISTER [None]
  - LOSS OF CONSCIOUSNESS [None]
  - PERSONALITY CHANGE [None]
  - RASH PAPULAR [None]
  - SCREAMING [None]
  - TENDERNESS [None]
